FAERS Safety Report 6753874-3 (Version None)
Quarter: 2010Q2

REPORT INFORMATION
  Report Type: 
  Country: None (occurrence: None)
  Receive Date: 20100603
  Receipt Date: 20100601
  Transmission Date: 20101027
  Serious: Yes (Other)
  Sender: FDA-Public Use
  Company Number: A0751987A

PATIENT
  Age: 56 Year
  Sex: Female

DRUGS (7)
  1. ALLI [Suspect]
     Indication: WEIGHT LOSS DIET
     Route: 048
     Dates: start: 20080401, end: 20080801
  2. MULTI-VITAMIN [Concomitant]
  3. CALCIUM CARBONATE [Concomitant]
  4. LISINOPRIL [Concomitant]
  5. HCTZ [Concomitant]
     Dosage: 25MG PER DAY
  6. ATENOLOL [Concomitant]
     Dosage: 100MG PER DAY
  7. ZETIA [Concomitant]

REACTIONS (5)
  - BIOPSY LIVER [None]
  - CHOLELITHIASIS [None]
  - HEPATIC CIRRHOSIS [None]
  - HEPATIC ENZYME INCREASED [None]
  - ULTRASOUND LIVER [None]
